FAERS Safety Report 10690606 (Version 1)
Quarter: 2015Q1

REPORT INFORMATION
  Report Type: Spontaneous
  Country: AT (occurrence: None)
  Receive Date: 20150102
  Receipt Date: 20150102
  Transmission Date: 20150720
  Serious: Yes (Other)
  Sender: FDA-Public Use
  Company Number: AT-2014VAL000680

PATIENT
  Age: 84 Year
  Sex: Male
  Weight: 84.8 kg

DRUGS (23)
  1. SEROQUEL [Concomitant]
     Active Substance: QUETIAPINE FUMARATE
  2. MAGNOSOLV (MAGNESIUM CARBONATE, MAGNESIUM OXIDE) [Concomitant]
  3. DOMINAL (PROTHIPENDYL HYDROCHLORIDE) [Suspect]
     Active Substance: PROTHIPENDYL HYDROCHLORIDE
     Indication: PRODUCT USED FOR UNKNOWN INDICATION
     Dates: start: 20131015, end: 20131017
  4. IXEL (MILNACIPRAN HYDROCHLORIDE) [Concomitant]
  5. SEDACORON (AMIODARONE HYDROCHLORIDE) [Concomitant]
  6. PEVISONE /00418502/ (ECONAZOLE NITRATE) [Concomitant]
  7. ABILIFY [Concomitant]
     Active Substance: ARIPIPRAZOLE
  8. OMEC (OMEPRAZOLE) [Concomitant]
  9. FUROHEXAL /00032601/ (FUROSEMIDE) [Concomitant]
  10. PLAVIX (CLOPIDOGREL BISULFATE) [Concomitant]
  11. INSPRA /01613601/ (EPLERENONE) [Concomitant]
  12. METOPROLOL TARTRATE. [Suspect]
     Active Substance: METOPROLOL TARTRATE
     Indication: PRODUCT USED FOR UNKNOWN INDICATION
     Dosage: 25 MG, SINCE YEARS, ORAL, ONGOING
     Route: 048
  13. MIRTABENE [Suspect]
     Active Substance: MIRTAZAPINE
     Indication: PRODUCT USED FOR UNKNOWN INDICATION
     Route: 048
     Dates: start: 20131002, end: 20131002
  14. CANESTEN (CLOTRIMAZOLE) [Concomitant]
  15. CIPRALEX /01588501/ (ESCITALOPRAM) [Concomitant]
  16. SIMVASTATIN. [Concomitant]
     Active Substance: SIMVASTATIN
  17. TEMESTA /00273201/ [Suspect]
     Active Substance: LORAZEPAM
     Indication: PRODUCT USED FOR UNKNOWN INDICATION
     Route: 048
     Dates: start: 20131015, end: 20131015
  18. ZOLDEM [Suspect]
     Active Substance: ZOLPIDEM TARTRATE
     Indication: PRODUCT USED FOR UNKNOWN INDICATION
     Route: 048
     Dates: start: 20131015, end: 20131015
  19. SELOKEN /00376902/ [Suspect]
     Active Substance: METOPROLOL TARTRATE
     Indication: PRODUCT USED FOR UNKNOWN INDICATION
     Dosage: 47.5 MG, SINCE YEARS, ORAL
     Route: 048
  20. NOVALGIN /00169801/ (CAFFEINE, PARACETAMOL, PROPYPHENAZONE) [Concomitant]
  21. MYCOSTATIN (NYSTATIN) [Concomitant]
  22. FOSTER /00500401/ (PIROXICAM) [Concomitant]
  23. EUTHYROX (LEVOTHYROXINE SODIUM) [Concomitant]

REACTIONS (7)
  - Syncope [None]
  - Fall [None]
  - Blood triglycerides increased [None]
  - Restlessness [None]
  - Initial insomnia [None]
  - Confusional state [None]
  - Merycism [None]

NARRATIVE: CASE EVENT DATE: 20131015
